FAERS Safety Report 22192366 (Version 2)
Quarter: 2023Q2

REPORT INFORMATION
  Report Type: Report from Study
  Country: JP (occurrence: JP)
  Receive Date: 20230410
  Receipt Date: 20230414
  Transmission Date: 20230721
  Serious: Yes (Hospitalization)
  Sender: FDA-Public Use
  Company Number: JP-DSRSG-DS8201AU305_32255002_000001

PATIENT
  Age: 40 Year
  Sex: Female
  Weight: 64.1 kg

DRUGS (17)
  1. FAM-TRASTUZUMAB DERUXTECAN-NXKI [Suspect]
     Active Substance: FAM-TRASTUZUMAB DERUXTECAN-NXKI
     Indication: HER2 positive breast cancer
     Dosage: 5.4 MG/KG, ONCE EVERY 3 WK
     Route: 042
     Dates: start: 20210416, end: 20210416
  2. FAM-TRASTUZUMAB DERUXTECAN-NXKI [Suspect]
     Active Substance: FAM-TRASTUZUMAB DERUXTECAN-NXKI
     Dosage: 5.4 MG/KG, ONCE EVERY 3 WK
     Route: 042
     Dates: start: 20210507, end: 20210507
  3. FAM-TRASTUZUMAB DERUXTECAN-NXKI [Suspect]
     Active Substance: FAM-TRASTUZUMAB DERUXTECAN-NXKI
     Dosage: 5.4 MG/KG, ONCE EVERY 3 WK
     Route: 042
     Dates: start: 20210526, end: 20210526
  4. FAM-TRASTUZUMAB DERUXTECAN-NXKI [Suspect]
     Active Substance: FAM-TRASTUZUMAB DERUXTECAN-NXKI
     Dosage: 5.4 MG/KG, ONCE EVERY 3 WK
     Route: 042
     Dates: start: 20210616, end: 20210616
  5. FAM-TRASTUZUMAB DERUXTECAN-NXKI [Suspect]
     Active Substance: FAM-TRASTUZUMAB DERUXTECAN-NXKI
     Dosage: 5.4 MG/KG, ONCE EVERY 3 WK
     Route: 042
     Dates: start: 20210707, end: 20210707
  6. FAM-TRASTUZUMAB DERUXTECAN-NXKI [Suspect]
     Active Substance: FAM-TRASTUZUMAB DERUXTECAN-NXKI
     Dosage: 5.4 MG/KG, ONCE EVERY 3 WK
     Route: 042
     Dates: start: 20210730, end: 20210730
  7. DOMPERIDONE [Concomitant]
     Active Substance: DOMPERIDONE
     Indication: Nausea
     Dosage: 10 MILLIGRAM, AS NEEDED
     Route: 048
     Dates: start: 20210423, end: 20210910
  8. MAGNESIUM OXIDE [Concomitant]
     Active Substance: MAGNESIUM OXIDE
     Indication: Constipation
     Dosage: 500 MILLIGRAM
     Route: 048
     Dates: start: 20210526, end: 20210910
  9. FURSULTIAMINE HYDROCHLORIDE [Concomitant]
     Active Substance: FURSULTIAMINE HYDROCHLORIDE
     Indication: Myalgia
     Dosage: 100 MG, AS NEEDED
     Route: 048
     Dates: start: 20210726, end: 20210910
  10. METHYLCOBALAMIN [Concomitant]
     Active Substance: METHYLCOBALAMIN
     Indication: Myalgia
     Dosage: 1500 UG, AS NEEDED
     Route: 048
     Dates: start: 20210726, end: 20210910
  11. GAMMA ORYZANOL [Concomitant]
     Active Substance: GAMMA ORYZANOL
     Indication: Myalgia
     Dosage: 10 MG, AS NEEDED
     Route: 048
     Dates: start: 20210726, end: 20210910
  12. FOLIC ACID [Concomitant]
     Active Substance: FOLIC ACID
     Indication: Myalgia
     Dosage: 1 MG, AS NEEDED
     Route: 048
     Dates: start: 20210726, end: 20210910
  13. LAC B [BIFIDOBACTERIUM BIFIDUM] [Concomitant]
     Indication: Diarrhoea
     Dosage: 1 DF, AS NEEDED
     Route: 048
     Dates: start: 20210616, end: 20210910
  14. LOXOPROFEN [Concomitant]
     Active Substance: LOXOPROFEN
     Indication: Headache
     Dosage: 60 MG, AS NEEDED
     Route: 048
     Dates: start: 20210721, end: 20210722
  15. PYRIDOXAL PHOSPHATE [Concomitant]
     Active Substance: PYRIDOXAL PHOSPHATE
     Indication: Myalgia
     Dosage: 60 MG, AS NEEDED
     Route: 048
     Dates: start: 20210726, end: 20210910
  16. D-ALPHA TOCOPHEROL SUCCINATE [Concomitant]
     Indication: Myalgia
     Dosage: 100 MG, AS NEEDED
     Route: 048
     Dates: start: 20210726, end: 20210910
  17. LEVOFLOXACIN [Concomitant]
     Active Substance: LEVOFLOXACIN
     Indication: Pyrexia
     Dosage: 250 MG, QD
     Route: 048
     Dates: start: 20210722, end: 20210726

REACTIONS (2)
  - Radiation pneumonitis [Recovering/Resolving]
  - Pneumonitis [Recovered/Resolved]

NARRATIVE: CASE EVENT DATE: 20210814
